FAERS Safety Report 7859520-X (Version None)
Quarter: 2011Q4

REPORT INFORMATION
  Report Type: 
  Country: None (occurrence: None)
  Receive Date: 20111027
  Receipt Date: 20111017
  Transmission Date: 20120403
  Serious: Yes (Hospitalization, Other)
  Sender: FDA-Public Use
  Company Number: US-BAYER-2011-020013

PATIENT
  Age: 17 Year
  Sex: Female
  Weight: 102.95 kg

DRUGS (2)
  1. YASMIN [Suspect]
     Indication: MENSTRUATION IRREGULAR
     Dosage: UNK
     Route: 048
     Dates: start: 20060810, end: 20070717
  2. YASMIN [Suspect]
     Dosage: UNK
     Dates: start: 20060101, end: 20100101

REACTIONS (5)
  - CHOLECYSTITIS CHRONIC [None]
  - ABDOMINAL PAIN [None]
  - CHOLECYSTECTOMY [None]
  - INJURY [None]
  - PAIN [None]
